FAERS Safety Report 10176453 (Version 3)
Quarter: 2014Q2

REPORT INFORMATION
  Report Type: Spontaneous
  Country: CA (occurrence: CA)
  Receive Date: 20140516
  Receipt Date: 20140612
  Transmission Date: 20141212
  Serious: Yes (Other)
  Sender: FDA-Public Use
  Company Number: CHPA2014US006144

PATIENT
  Age: 70 Year
  Sex: Female

DRUGS (2)
  1. LAMISIL AT CREAM UNKNOWN AF OR JI [Suspect]
     Indication: ERYTHEMA
     Dosage: UNK UNK, QD
     Route: 061
     Dates: start: 20140429, end: 20140501
  2. LAMISIL AT CREAM UNKNOWN AF OR JI [Suspect]
     Indication: OFF LABEL USE

REACTIONS (4)
  - Fungal infection [Unknown]
  - Skin exfoliation [Unknown]
  - Pain [Unknown]
  - Blister [Unknown]
